FAERS Safety Report 18679994 (Version 1)
Quarter: 2020Q4

REPORT INFORMATION
  Report Type: Spontaneous
  Country: FR (occurrence: FR)
  Receive Date: 20201229
  Receipt Date: 20201229
  Transmission Date: 20210114
  Serious: Yes (Hospitalization, Other)
  Sender: FDA-Public Use
  Company Number: FR-ASCEND THERAPEUTICS US, LLC-2103597

PATIENT
  Sex: Female
  Weight: 61 kg

DRUGS (16)
  1. CYPROTERONE (CYPROTERONE), UNKNOWN [Suspect]
     Active Substance: CYPROTERONE
     Route: 065
  2. ANDROCUR (CYPROTERONE ACETATE), UNKNOWN?INDICATION FOR USE: HYPERANDRO [Suspect]
     Active Substance: CYPROTERONE ACETATE
     Route: 065
     Dates: start: 20120828, end: 20130826
  3. ESTROGEL [Suspect]
     Active Substance: ESTRADIOL
  4. MIRENA [Suspect]
     Active Substance: LEVONORGESTREL
     Route: 015
     Dates: start: 20040901, end: 20050913
  5. TRINORDIOL (ETHINYLESTRADIOL, LEVONORGESTREL), UNKNOWN?INDICATION FOR [Suspect]
     Active Substance: ETHINYL ESTRADIOL\LEVONORGESTREL
     Route: 065
  6. ANDROCUR (CYPROTERONE ACETATE), UNKNOWN [Suspect]
     Active Substance: CYPROTERONE ACETATE
     Route: 065
     Dates: start: 2000, end: 2004
  7. CYPROTERONE (CYPROTERONE), UNKNOWN?INDICATION FOR USE: HYPERANDROGENEM [Suspect]
     Active Substance: CYPROTERONE
     Route: 065
     Dates: start: 20190615
  8. ANDROCUR (CYPROTERONE ACETATE), UNKNOWN [Suspect]
     Active Substance: CYPROTERONE ACETATE
     Route: 065
     Dates: start: 200507, end: 201108
  9. ESTRADIOL. [Suspect]
     Active Substance: ESTRADIOL
     Route: 065
  10. CYCLEANE (ETHINYLESTRADIOL, DESOGESTREL), UNKNOWN?INDICATION FOR USE: [Suspect]
     Active Substance: DESOGESTREL\ETHINYL ESTRADIOL
     Route: 065
     Dates: start: 2000, end: 2004
  11. ANDROCUR (CYPROTERONE ACETATE), UNKNOWN [Suspect]
     Active Substance: CYPROTERONE ACETATE
     Route: 065
     Dates: start: 199806, end: 1999
  12. CYPROTERONE (CYPROTERONE), UNKNOWN [Suspect]
     Active Substance: CYPROTERONE
     Route: 065
     Dates: start: 20110404
  13. CYPROTERONE (CYPROTERONE), UNKNOWN [Suspect]
     Active Substance: CYPROTERONE
     Route: 065
     Dates: start: 20110606
  14. ESTROGEL [Suspect]
     Active Substance: ESTRADIOL
     Indication: PRODUCT USED FOR UNKNOWN INDICATION
     Route: 065
  15. ANDROCUR (CYPROTERONE ACETATE), UNKNOWN [Suspect]
     Active Substance: CYPROTERONE ACETATE
     Route: 065
     Dates: end: 201506
  16. OROMONE (ESTRADIOL), UNKNOWN?INDICATION FOR USE: HYPERANDROGENEMIA [Suspect]
     Active Substance: ESTRADIOL
     Route: 065
     Dates: start: 200507, end: 201108

REACTIONS (18)
  - Pain [Unknown]
  - Muscle tightness [Unknown]
  - Fatigue [Unknown]
  - Headache [Unknown]
  - Squamous cell carcinoma [Unknown]
  - Post procedural oedema [Unknown]
  - Tension headache [Unknown]
  - Facial paralysis [Unknown]
  - Epilepsy [Unknown]
  - Scar [Unknown]
  - Skin lesion [Unknown]
  - Haemorrhage [Unknown]
  - Cognitive disorder [Unknown]
  - Meningioma [Unknown]
  - Pain of skin [Unknown]
  - Haematoma [Unknown]
  - Sleep disorder [Unknown]
  - Skin depigmentation [Unknown]

NARRATIVE: CASE EVENT DATE: 20140814
